FAERS Safety Report 23609533 (Version 6)
Quarter: 2024Q2

REPORT INFORMATION
  Report Type: Report from Study
  Country: US (occurrence: US)
  Receive Date: 20240308
  Receipt Date: 20240524
  Transmission Date: 20240716
  Serious: Yes (Hospitalization)
  Sender: FDA-Public Use
  Company Number: US-INSMED, INC.-2024-00802-US

PATIENT
  Age: 69 Year
  Sex: Male

DRUGS (5)
  1. ARIKAYCE [Suspect]
     Active Substance: AMIKACIN
     Indication: Product used for unknown indication
     Dosage: 590 MILLIGRAM, QD
     Route: 055
     Dates: start: 202402, end: 202402
  2. ARIKAYCE [Suspect]
     Active Substance: AMIKACIN
     Dosage: 590 MILLIGRAM, QD
     Route: 055
     Dates: start: 2024, end: 2024
  3. ARIKAYCE [Suspect]
     Active Substance: AMIKACIN
     Dosage: 590 MILLIGRAM, UNK
     Route: 055
     Dates: start: 2024
  4. OMADACYCLINE [Suspect]
     Active Substance: OMADACYCLINE
     Indication: Product used for unknown indication
     Dosage: UNK, UNK
     Route: 065
     Dates: start: 202403, end: 2024
  5. LINEZOLID [Concomitant]
     Active Substance: LINEZOLID
     Indication: Product used for unknown indication
     Dosage: UNK, UNK
     Route: 065
     Dates: end: 2024

REACTIONS (8)
  - Blood pressure decreased [Recovered/Resolved]
  - Blood pressure decreased [Unknown]
  - Eating disorder [Unknown]
  - Blood electrolytes decreased [Unknown]
  - Syncope [Unknown]
  - Cough [Unknown]
  - Therapy interrupted [Unknown]
  - Product dose omission issue [Unknown]

NARRATIVE: CASE EVENT DATE: 20240212
